FAERS Safety Report 14032561 (Version 2)
Quarter: 2017Q4

REPORT INFORMATION
  Report Type: Spontaneous
  Country: TR (occurrence: TR)
  Receive Date: 20171003
  Receipt Date: 20171010
  Transmission Date: 20180321
  Serious: Yes (Death, Hospitalization, Congenital Anomaly, Other)
  Sender: FDA-Public Use
  Company Number: TR-SUN PHARMACEUTICAL INDUSTRIES LTD-2017RR-151134

PATIENT
  Sex: Female

DRUGS (1)
  1. VENLAFAXINE [Suspect]
     Active Substance: VENLAFAXINE HYDROCHLORIDE
     Indication: MAJOR DEPRESSION
     Dosage: 75 MG, DAILY
     Route: 064

REACTIONS (4)
  - Cardio-respiratory arrest [Fatal]
  - Foetal exposure during pregnancy [Unknown]
  - Foetal growth restriction [Unknown]
  - VACTERL syndrome [Unknown]
